FAERS Safety Report 5103601-0 (Version None)
Quarter: 2006Q3

REPORT INFORMATION
  Report Type: 
  Country: None (occurrence: None)
  Receive Date: 20060908
  Receipt Date: 20060908
  Transmission Date: 20061208
  Serious: Yes (Life-Threatening, Hospitalization, Other)
  Sender: FDA-Public Use
  Company Number: None

PATIENT
  Age: 52 Year
  Sex: Female
  Weight: 52.1637 kg

DRUGS (6)
  1. PAMIDRONATE 30MG BEDFORD [Suspect]
     Indication: OSTEOPOROSIS
     Dosage: 60 MG Q MONTH IV DRIP
     Route: 041
     Dates: start: 20060902, end: 20060902
  2. TPN [Concomitant]
  3. ZOLOFT [Concomitant]
  4. PROTONIX [Concomitant]
  5. IV DILAUDID [Concomitant]
  6. METHADONE HCL [Concomitant]

REACTIONS (11)
  - ABDOMINAL PAIN [None]
  - CHOLELITHIASIS [None]
  - FLATULENCE [None]
  - GASTROINTESTINAL DISORDER [None]
  - INTESTINAL PERFORATION [None]
  - MALABSORPTION [None]
  - NAUSEA [None]
  - OSTEOPOROSIS [None]
  - PERITONITIS [None]
  - PYREXIA [None]
  - VOMITING [None]
